FAERS Safety Report 7685674-4 (Version None)
Quarter: 2011Q3

REPORT INFORMATION
  Report Type: 
  Country: None (occurrence: None)
  Receive Date: 20110815
  Receipt Date: 20110815
  Transmission Date: 20111222
  Serious: Yes (Life-Threatening)
  Sender: FDA-Public Use
  Company Number: None

PATIENT
  Age: 48 Year
  Sex: Male
  Weight: 104.3273 kg

DRUGS (1)
  1. SUMAVEL DOSEPRO [Suspect]
     Indication: MIGRAINE
     Dosage: 6MG X1 SQ
     Route: 058
     Dates: start: 20110725

REACTIONS (2)
  - LOSS OF CONSCIOUSNESS [None]
  - PRESYNCOPE [None]
